FAERS Safety Report 7263864-2 (Version None)
Quarter: 2011Q1

REPORT INFORMATION
  Report Type: 
  Country: None (occurrence: None)
  Receive Date: 20110130
  Receipt Date: 20101109
  Transmission Date: 20110831
  Serious: No
  Sender: FDA-Public Use
  Company Number: US-ABBOTT-10P-163-0684378-00

PATIENT
  Age: 37 Year
  Sex: Female

DRUGS (8)
  1. HUMIRA [Suspect]
     Indication: PSORIASIS
     Dates: start: 20101101
  2. FLEXERIL [Concomitant]
     Indication: MIGRAINE
  3. HUMIRA [Suspect]
     Dates: start: 20101109
  4. LEXAPRO [Concomitant]
     Indication: DEPRESSION
     Dosage: IN THE MORNING
  5. MULTI-VITAMIN [Concomitant]
     Indication: PRODUCT USED FOR UNKNOWN INDICATION
     Dosage: IN THE MORNING
  6. LEXAPRO [Concomitant]
     Indication: ANXIETY
  7. ZYRTEC [Concomitant]
     Indication: PRODUCT USED FOR UNKNOWN INDICATION
     Dosage: IN THE MORNING
  8. DARVOCET-N 100 [Concomitant]
     Indication: MIGRAINE

REACTIONS (4)
  - MUSCLE SPASMS [None]
  - DIZZINESS [None]
  - INJECTION SITE PAIN [None]
  - NAUSEA [None]
